FAERS Safety Report 9424428 (Version 2)
Quarter: 2013Q3

REPORT INFORMATION
  Report Type: Spontaneous
  Country: JP (occurrence: JP)
  Receive Date: 20130729
  Receipt Date: 20130820
  Transmission Date: 20140515
  Serious: Yes (Hospitalization)
  Sender: FDA-Public Use
  Company Number: JP-BAYER-2013-089988

PATIENT
  Age: 62 Year
  Sex: Male

DRUGS (5)
  1. DACARBAZINE [Suspect]
     Indication: METASTATIC MALIGNANT MELANOMA
     Dosage: 1343 MG, Q3WK
     Route: 042
     Dates: start: 20130425
  2. IPILIMUMAB [Suspect]
     Indication: METASTATIC MALIGNANT MELANOMA
     Dosage: 547 MG EVERY 3 WEEKS
     Route: 042
     Dates: start: 20130425
  3. SUCROSE [Concomitant]
     Dosage: UNK
     Dates: start: 20130424
  4. BETAMETHASONE [Concomitant]
     Dosage: UNK
     Dates: start: 20130503
  5. FEXOFENADINE HYDROCHLORIDE [Concomitant]
     Dosage: UNK
     Dates: start: 20130508

REACTIONS (2)
  - Alanine aminotransferase increased [Recovered/Resolved with Sequelae]
  - Aspartate aminotransferase increased [Recovered/Resolved with Sequelae]
